FAERS Safety Report 6435749-2 (Version None)
Quarter: 2009Q4

REPORT INFORMATION
  Report Type: 
  Country: None (occurrence: None)
  Receive Date: 20091111
  Receipt Date: 20091029
  Transmission Date: 20100525
  Serious: No
  Sender: FDA-Public Use
  Company Number: US-JNJFOC-20091100746

PATIENT
  Sex: Female

DRUGS (7)
  1. DURAGESIC-100 [Suspect]
     Indication: PAIN
     Route: 062
  2. TOPAMAX [Concomitant]
     Indication: MIGRAINE
     Route: 048
  3. ACEBUTOLOL [Concomitant]
     Indication: DRUG USE FOR UNKNOWN INDICATION
     Route: 048
  4. LORTAB [Concomitant]
     Indication: PAIN
     Dosage: FREQUENCY: ONCE EVERY 4-6 HOURS
     Route: 048
  5. LEXAPRO [Concomitant]
     Indication: DEPRESSION
     Route: 048
  6. GLUCOPHAGE [Concomitant]
     Indication: DIABETES MELLITUS
     Route: 048
  7. PHENERGAN HCL [Concomitant]
     Indication: NAUSEA
     Route: 048

REACTIONS (5)
  - ADVERSE EVENT [None]
  - MUSCLE SPASMS [None]
  - PRODUCT QUALITY ISSUE [None]
  - RESTLESS LEGS SYNDROME [None]
  - WRONG TECHNIQUE IN DRUG USAGE PROCESS [None]
